FAERS Safety Report 20992321 (Version 3)
Quarter: 2022Q3

REPORT INFORMATION
  Report Type: Report from Study
  Country: BR (occurrence: BR)
  Receive Date: 20220622
  Receipt Date: 20220720
  Transmission Date: 20221027
  Serious: No
  Sender: FDA-Public Use
  Company Number: BR-JNJFOC-20220642711

PATIENT
  Age: 46 Year
  Sex: Female
  Weight: 80 kg

DRUGS (1)
  1. REMICADE [Suspect]
     Active Substance: INFLIXIMAB
     Indication: Rheumatoid arthritis
     Route: 041
     Dates: start: 20220504

REACTIONS (9)
  - Infection [Unknown]
  - Ulcer [Unknown]
  - Neoplasm [Unknown]
  - Peripheral swelling [Unknown]
  - Pain [Unknown]
  - Pharyngitis [Recovering/Resolving]
  - Gait inability [Recovering/Resolving]
  - Pain in extremity [Recovering/Resolving]
  - Arthralgia [Recovering/Resolving]

NARRATIVE: CASE EVENT DATE: 20220101
